FAERS Safety Report 8291378-X (Version None)
Quarter: 2012Q2

REPORT INFORMATION
  Report Type: 
  Country: None (occurrence: None)
  Receive Date: 20120417
  Receipt Date: 20120412
  Transmission Date: 20120825
  Serious: Yes (Other)
  Sender: FDA-Public Use
  Company Number: US-GLAXOSMITHKLINE-A0973859A

PATIENT
  Age: 66 Year
  Sex: Female
  Weight: 74.1 kg

DRUGS (3)
  1. ACCUPRIL [Concomitant]
  2. LIPITOR [Concomitant]
  3. AVANDIA [Suspect]
     Indication: DIABETES MELLITUS
     Dosage: 4MG PER DAY
     Route: 048
     Dates: start: 20030227, end: 20040401

REACTIONS (1)
  - ISCHAEMIC STROKE [None]
